FAERS Safety Report 16463567 (Version 1)
Quarter: 2019Q3

REPORT INFORMATION
  Report Type: Spontaneous
  Country: US (occurrence: US)
  Receive Date: 20190620
  Receipt Date: 20190620
  Transmission Date: 20191004
  Serious: Yes (Hospitalization)
  Sender: FDA-Public Use
  Company Number: None

PATIENT
  Age: 78 Year
  Sex: Female

DRUGS (5)
  1. FORTEO [Suspect]
     Active Substance: TERIPARATIDE
     Indication: OSTEOPOROSIS
     Route: 058
     Dates: start: 20171218
  2. LIOTHYRONINE 5MCG TABLETS [Concomitant]
     Dates: start: 20190320
  3. PILOCARPINE 5MG TABLETS [Concomitant]
     Dates: start: 20190108
  4. LEVOTHYROXINE 25MCG TABLETS [Concomitant]
     Dates: start: 20190430
  5. XARELTO 20 MG TABLETS [Concomitant]
     Dates: start: 20190508

REACTIONS (2)
  - Foot operation [None]
  - Therapy cessation [None]

NARRATIVE: CASE EVENT DATE: 20190520
